FAERS Safety Report 12663124 (Version 2)
Quarter: 2016Q3

REPORT INFORMATION
  Report Type: Report from Study
  Country: AU (occurrence: AU)
  Receive Date: 20160818
  Receipt Date: 20160915
  Transmission Date: 20161109
  Serious: Yes (Hospitalization)
  Sender: FDA-Public Use
  Company Number: PHHO2012AU021010

PATIENT
  Age: 63 Year
  Sex: Male
  Weight: 102 kg

DRUGS (58)
  1. PAZOPANIB [Suspect]
     Active Substance: PAZOPANIB
     Indication: METASTATIC RENAL CELL CARCINOMA
     Dosage: UNK
     Route: 048
     Dates: start: 20121024
  2. PAZOPANIB [Suspect]
     Active Substance: PAZOPANIB
     Dosage: UNK
     Route: 048
     Dates: start: 20121122
  3. METFORMIN HYDROCHLORIDE. [Concomitant]
     Active Substance: METFORMIN HYDROCHLORIDE
     Indication: TYPE 2 DIABETES MELLITUS
     Dosage: 850,BID
     Route: 048
     Dates: start: 20050101
  4. CRESTOR [Concomitant]
     Active Substance: ROSUVASTATIN CALCIUM
     Indication: HYPERCHOLESTEROLAEMIA
     Dosage: 20 ONCE DAILY
     Route: 048
     Dates: start: 20050101
  5. OSTELIN [Concomitant]
     Active Substance: ERGOCALCIFEROL
     Indication: VITAMIN D DEFICIENCY
     Dosage: 1000 ONCE DAILY
     Route: 048
     Dates: start: 20090101
  6. CLEXANE [Concomitant]
     Active Substance: ENOXAPARIN SODIUM
     Indication: ANTICOAGULANT THERAPY
     Dosage: 40 ONCE DAILY
     Route: 058
  7. GENTAMICIN. [Concomitant]
     Active Substance: GENTAMICIN
     Indication: PNEUMONIA
     Dosage: 240 ONCE DAILY
     Route: 042
     Dates: start: 20130105, end: 20130105
  8. OXYCODONE [Concomitant]
     Active Substance: OXYCODONE
     Indication: ANALGESIC THERAPY
     Dosage: 10 PRN
     Route: 048
     Dates: start: 20130105, end: 20130131
  9. DIAMICRON [Concomitant]
     Active Substance: GLICLAZIDE
     Indication: TYPE 2 DIABETES MELLITUS
     Dosage: 2 ONCE DAILY
     Route: 048
     Dates: start: 20090101
  10. ERYTHROMYCIN. [Concomitant]
     Active Substance: ERYTHROMYCIN
     Indication: PROPHYLAXIS
     Dosage: 250 ONCE DAILY
     Route: 048
     Dates: start: 20120928
  11. PERINDOPRIL [Concomitant]
     Active Substance: PERINDOPRIL
     Indication: HYPERTENSION
     Dosage: 4 ONCE DAILY
     Route: 048
     Dates: start: 20050101
  12. PARACETAMOL [Concomitant]
     Active Substance: ACETAMINOPHEN
     Indication: PANCREATIC PSEUDOCYST
     Dosage: 1 PRN
     Route: 048
     Dates: start: 20121228, end: 20130102
  13. MORPHINE [Concomitant]
     Active Substance: MORPHINE
     Dosage: 5 PRN
     Route: 042
     Dates: start: 20130104, end: 20130105
  14. GENTAMICIN. [Concomitant]
     Active Substance: GENTAMICIN
     Indication: PRODUCT USED FOR UNKNOWN INDICATION
     Dosage: 360, ONCE DAILY
     Route: 042
     Dates: start: 20121106, end: 20121106
  15. NORMAL SALINE [Concomitant]
     Active Substance: SODIUM CHLORIDE
     Indication: PANCREATIC PSEUDOCYST
     Dosage: 1 PRN
     Route: 042
     Dates: start: 20121227, end: 20121228
  16. OXYCODONE [Concomitant]
     Active Substance: OXYCODONE
     Indication: PANCREAS INFECTION
     Dosage: 20 PRN
     Route: 048
     Dates: start: 20121106, end: 20121108
  17. ASPIRIN. [Concomitant]
     Active Substance: ASPIRIN
     Indication: PRODUCT USED FOR UNKNOWN INDICATION
     Dosage: 100 ONCE DAILY
     Route: 048
     Dates: start: 20120801
  18. ONDANSETRON [Concomitant]
     Active Substance: ONDANSETRON
     Indication: PROPHYLAXIS OF NAUSEA AND VOMITING
     Dosage: PRN
     Route: 048
     Dates: start: 20121122
  19. STEMETIL//PROCHLORPERAZINE [Concomitant]
     Active Substance: PROCHLORPERAZINE
     Indication: NAUSEA
     Dosage: 5 PRN AND  TID
     Route: 048
     Dates: start: 20121129, end: 20121226
  20. FENTANYL. [Concomitant]
     Active Substance: FENTANYL
     Dosage: 100 PRN
     Route: 058
     Dates: start: 20121104, end: 20121105
  21. DROPERIDOL. [Concomitant]
     Active Substance: DROPERIDOL
     Indication: ANALGESIC THERAPY
     Dosage: 0.5 PRN
     Route: 042
     Dates: start: 20121106, end: 20121107
  22. ENDONE [Concomitant]
     Active Substance: OXYCODONE HYDROCHLORIDE
     Indication: PANCREATIC PSEUDOCYST
     Dosage: 10 PRN
     Route: 048
     Dates: start: 20121228, end: 20130103
  23. ENDONE [Concomitant]
     Active Substance: OXYCODONE HYDROCHLORIDE
     Indication: PANCREAS INFECTION
     Dosage: 10 ONCE DAILY
     Route: 048
     Dates: start: 20130128, end: 20130128
  24. LACTULOSE. [Concomitant]
     Active Substance: LACTULOSE
     Indication: PSEUDOCYST
     Dosage: 30 BID
     Route: 048
     Dates: start: 20130101, end: 20130103
  25. TROPISETRON [Concomitant]
     Active Substance: TROPISETRON
     Indication: PANCREAS INFECTION
     Dosage: 2 ONCE DAILY
     Route: 042
     Dates: start: 20130104, end: 20130104
  26. OCTREOTIDE. [Concomitant]
     Active Substance: OCTREOTIDE
     Indication: PANCREAS INFECTION
     Dosage: 100 TID
     Route: 058
     Dates: start: 20130121, end: 20130202
  27. MIRTAZAPINE. [Concomitant]
     Active Substance: MIRTAZAPINE
     Indication: ANXIETY
     Dosage: 30 ONCE DAILY
     Route: 048
     Dates: start: 20090101
  28. CEPHAZOLIN [Concomitant]
     Active Substance: CEFAZOLIN
     Indication: PNEUMONIA
     Dosage: 1 TID
     Route: 042
     Dates: start: 20121105, end: 20121108
  29. NORMAL SALINE [Concomitant]
     Active Substance: SODIUM CHLORIDE
     Dosage: 3 ONCE DAILY
     Route: 042
     Dates: start: 20130105, end: 20130105
  30. KEFLEX [Concomitant]
     Active Substance: CEPHALEXIN
     Indication: PANCREAS INFECTION
     Dosage: 500 QID
     Route: 048
     Dates: start: 20130130, end: 20130203
  31. DOXYCYCLINE. [Concomitant]
     Active Substance: DOXYCYCLINE
     Indication: PANCREAS INFECTION
     Dosage: 100 BID
     Route: 048
     Dates: start: 20130130, end: 20130205
  32. ATACAND [Concomitant]
     Active Substance: CANDESARTAN CILEXETIL
     Indication: HYPERTENSION
     Dosage: 8 ONCE DAILY
     Route: 048
     Dates: start: 20121207, end: 20121220
  33. COLOXYL WITH SENNA [Concomitant]
     Active Substance: DOCUSATE\SENNOSIDES
     Indication: CONSTIPATION PROPHYLAXIS
     Dosage: 1 BID
     Route: 048
     Dates: start: 20120815
  34. FLAGYL [Concomitant]
     Active Substance: METRONIDAZOLE\METRONIDAZOLE HYDROCHLORIDE
     Indication: PANCREAS INFECTION
     Dosage: 500 TID
     Route: 042
     Dates: start: 20130105, end: 20130114
  35. VANCOMYCIN [Concomitant]
     Active Substance: VANCOMYCIN
     Dosage: 750 BID
     Route: 042
     Dates: start: 20130117, end: 20130130
  36. ONDANSETRON [Concomitant]
     Active Substance: ONDANSETRON
     Indication: NAUSEA
     Dosage: 8 PRN
     Route: 042
     Dates: start: 20121105, end: 20121108
  37. STEMETIL//PROCHLORPERAZINE [Concomitant]
     Active Substance: PROCHLORPERAZINE
     Indication: PANCREAS INFECTION
     Dosage: 10 TID
     Route: 048
     Dates: start: 20121227, end: 20130103
  38. STEMETIL//PROCHLORPERAZINE [Concomitant]
     Active Substance: PROCHLORPERAZINE
     Dosage: 5 TID
     Route: 048
     Dates: start: 20130106, end: 20130116
  39. MORPHINE [Concomitant]
     Active Substance: MORPHINE
     Indication: ANALGESIC THERAPY
     Dosage: 5 ONCE A WEEK
     Route: 030
     Dates: start: 20121101, end: 20121101
  40. METRONIDAZOLE. [Concomitant]
     Active Substance: METRONIDAZOLE
     Indication: PNEUMONIA
     Dosage: 500 BID
     Route: 042
     Dates: start: 20121106, end: 20121108
  41. NORMAL SALINE [Concomitant]
     Active Substance: SODIUM CHLORIDE
     Indication: PANCREAS INFECTION
     Dosage: 1 PRN
     Route: 042
     Dates: start: 20131227, end: 20131228
  42. PANADOL [Concomitant]
     Active Substance: ACETAMINOPHEN
     Indication: PRODUCT USED FOR UNKNOWN INDICATION
     Route: 065
  43. CLEXANE [Concomitant]
     Active Substance: ENOXAPARIN SODIUM
     Dosage: UNK
  44. MORPHINE [Concomitant]
     Active Substance: MORPHINE
     Dosage: 7.5 ONCE DAILY
     Route: 042
     Dates: start: 20121227, end: 20121227
  45. MORPHINE [Concomitant]
     Active Substance: MORPHINE
     Dosage: 7.5 ONCE DAILY
     Route: 042
     Dates: start: 20131227, end: 20131227
  46. GENTAMICIN. [Concomitant]
     Active Substance: GENTAMICIN
     Indication: PANCREAS INFECTION
  47. NORMAL SALINE [Concomitant]
     Active Substance: SODIUM CHLORIDE
     Dosage: 1 ONCE DAILY
     Route: 042
     Dates: start: 20130107, end: 20130107
  48. CEFTRIAXONE. [Concomitant]
     Active Substance: CEFTRIAXONE
     Indication: PANCREATIC PSEUDOCYST
     Dosage: 1 ONCE DAILY
     Route: 042
     Dates: start: 20130105, end: 20130114
  49. CEFTRIAXONE. [Concomitant]
     Active Substance: CEFTRIAXONE
     Dosage: 1 BID
     Route: 042
     Dates: start: 20130126, end: 20130130
  50. VANCOMYCIN [Concomitant]
     Active Substance: VANCOMYCIN
     Indication: PANCREAS INFECTION
     Dosage: 1 BID
     Route: 042
     Dates: start: 20130108, end: 20130117
  51. ATACAND [Concomitant]
     Active Substance: CANDESARTAN CILEXETIL
     Dosage: 16 ONCE DAILY
     Route: 048
     Dates: start: 20121221
  52. PARACETAMOL [Concomitant]
     Active Substance: ACETAMINOPHEN
     Indication: RESTLESS LEGS SYNDROME
     Dosage: 1 PRN
     Route: 048
     Dates: start: 20080101, end: 20121227
  53. CLEXANE [Concomitant]
     Active Substance: ENOXAPARIN SODIUM
     Indication: PRODUCT USED FOR UNKNOWN INDICATION
     Dosage: 40 UNKNOWN
     Route: 058
     Dates: start: 20121104, end: 20121104
  54. MORPHINE [Concomitant]
     Active Substance: MORPHINE
     Indication: PANCREAS INFECTION
     Dosage: 5 ONCE A DAY
     Route: 058
     Dates: start: 20121102, end: 20121102
  55. FENTANYL. [Concomitant]
     Active Substance: FENTANYL
     Indication: ANALGESIC THERAPY
     Dosage: 20 BID
     Route: 042
     Dates: start: 20121103, end: 20121103
  56. METRONIDAZOLE. [Concomitant]
     Active Substance: METRONIDAZOLE
     Indication: PANCREAS INFECTION
     Dosage: 500 TID
     Route: 042
     Dates: start: 20121228, end: 20121231
  57. METRONIDAZOLE. [Concomitant]
     Active Substance: METRONIDAZOLE
     Dosage: 500 ONCE DAILY
     Route: 042
     Dates: start: 20130105, end: 20130105
  58. CIPROFLACIN [Concomitant]
     Indication: PANCREATIC PSEUDOCYST
     Dosage: 400 BID
     Route: 042
     Dates: start: 20121228, end: 20121231

REACTIONS (2)
  - Small intestinal obstruction [Recovered/Resolved]
  - Incarcerated hernia [Recovered/Resolved]

NARRATIVE: CASE EVENT DATE: 20121101
